FAERS Safety Report 18055193 (Version 2)
Quarter: 2020Q3

REPORT INFORMATION
  Report Type: Spontaneous
  Country: US (occurrence: US)
  Receive Date: 20200722
  Receipt Date: 20200904
  Transmission Date: 20201103
  Serious: No
  Sender: FDA-Public Use
  Company Number: US-AMGEN-USASP2020113371

PATIENT
  Age: 64 Year
  Sex: Female

DRUGS (1)
  1. PROLIA [Suspect]
     Active Substance: DENOSUMAB
     Indication: OSTEOPOROSIS POSTMENOPAUSAL
     Dosage: 15 MILLIGRAM
     Route: 065
     Dates: start: 20200708

REACTIONS (5)
  - Pelvic girdle pain [Unknown]
  - Intentional product misuse [Unknown]
  - Influenza like illness [Unknown]
  - Back pain [Unknown]
  - Bone pain [Unknown]

NARRATIVE: CASE EVENT DATE: 202007
